FAERS Safety Report 20438870 (Version 2)
Quarter: 2022Q1

REPORT INFORMATION
  Report Type: Report from Study
  Country: CN (occurrence: None)
  Receive Date: 20220207
  Receipt Date: 20220218
  Transmission Date: 20220424
  Serious: Yes (Hospitalization)
  Sender: FDA-Public Use
  Company Number: CN-ROCHE-3000583

PATIENT
  Age: 58 Year
  Sex: Male
  Weight: 71.6 kg

DRUGS (1)
  1. ENTRECTINIB [Suspect]
     Active Substance: ENTRECTINIB
     Indication: Neoplasm
     Dosage: DATE OF LAST DOSE PRIOR TO AE: 25/JAN/2022
     Route: 048
     Dates: start: 20201021

REACTIONS (1)
  - Haemoptysis [Recovered/Resolved]

NARRATIVE: CASE EVENT DATE: 20220107
